FAERS Safety Report 19239471 (Version 1)
Quarter: 2021Q2

REPORT INFORMATION
  Report Type: Spontaneous
  Country: US (occurrence: US)
  Receive Date: 20210511
  Receipt Date: 20210511
  Transmission Date: 20210717
  Serious: Yes (Hospitalization, Other)
  Sender: FDA-Public Use
  Company Number: US-JNJFOC-20210501430

PATIENT

DRUGS (1)
  1. PARACETAMOL [Suspect]
     Active Substance: ACETAMINOPHEN
     Indication: PRODUCT USED FOR UNKNOWN INDICATION
     Route: 048

REACTIONS (17)
  - Acute kidney injury [Unknown]
  - Alanine aminotransferase increased [Unknown]
  - Aspartate aminotransferase increased [Unknown]
  - Intentional overdose [Unknown]
  - Encephalopathy [Unknown]
  - Hypokalaemia [Unknown]
  - Hypoglycaemia [Unknown]
  - Hyperammonaemia [Unknown]
  - Metabolic acidosis [Unknown]
  - Liver injury [Unknown]
  - Accidental overdose [Unknown]
  - Delirium [Unknown]
  - Hyperphosphataemia [Unknown]
  - Suicide attempt [Unknown]
  - Coagulopathy [Unknown]
  - Hepatitis acute [Unknown]
  - Acute hepatic failure [Unknown]
